FAERS Safety Report 23260793 (Version 1)
Quarter: 2023Q4

REPORT INFORMATION
  Report Type: Spontaneous
  Country: US (occurrence: US)
  Receive Date: 20231205
  Receipt Date: 20231205
  Transmission Date: 20240109
  Serious: No
  Sender: FDA-Public Use
  Company Number: US-STERISCIENCE B.V.-2022-ST-000172

PATIENT
  Age: 23 Year
  Sex: Female

DRUGS (8)
  1. BUPIVACAINE [Suspect]
     Active Substance: BUPIVACAINE
     Indication: Epidural analgesia
     Dosage: UNK
     Route: 008
  2. FENTANYL [Suspect]
     Active Substance: FENTANYL\FENTANYL CITRATE
     Indication: Epidural analgesia
     Dosage: 2 UG/ML PROGRAMMED INTERMITTENT EPIDURAL BOLUS 6 ML EVERY 45 MINUTES PLUS PCEA FOR INDUCTION OF LABO
     Route: 008
  3. LIDOCAINE [Suspect]
     Active Substance: LIDOCAINE
     Indication: Epidural analgesia
     Dosage: LIDOCAINE 2% LIDOCAINE 2ML
     Route: 008
  4. LIDOCAINE [Suspect]
     Active Substance: LIDOCAINE
     Dosage: 2% LIDOCAINE 5ML
     Route: 065
  5. PHENYLEPHRINE [Suspect]
     Active Substance: PHENYLEPHRINE HYDROCHLORIDE
     Indication: Drug therapy
     Dosage: BOLUS
     Route: 065
  6. OXYTOCIN [Suspect]
     Active Substance: OXYTOCIN
     Indication: Labour induction
     Dosage: UNK
     Route: 042
  7. LEXAPRO [Concomitant]
     Active Substance: ESCITALOPRAM OXALATE
     Indication: Depression
     Dosage: UNK
     Route: 065
  8. ASPIRIN [Concomitant]
     Active Substance: ASPIRIN
     Indication: Non-compaction cardiomyopathy
     Dosage: UNK
     Route: 065

REACTIONS (1)
  - Maternal exposure during delivery [Unknown]
